FAERS Safety Report 16127076 (Version 1)
Quarter: 2019Q1

REPORT INFORMATION
  Report Type: Spontaneous
  Country: US (occurrence: US)
  Receive Date: 20190328
  Receipt Date: 20190328
  Transmission Date: 20190418
  Serious: Yes (Death)
  Sender: FDA-Public Use
  Company Number: US-TEVA-2019-US-1031511

PATIENT
  Age: 57 Year
  Sex: Female

DRUGS (11)
  1. CARVEDILOL. [Concomitant]
     Active Substance: CARVEDILOL
  2. CELEXA [Concomitant]
     Active Substance: CITALOPRAM HYDROBROMIDE
  3. BACLOFEN. [Concomitant]
     Active Substance: BACLOFEN
  4. OMEPRAZOLE. [Concomitant]
     Active Substance: OMEPRAZOLE
  5. SYNTHROID [Concomitant]
     Active Substance: LEVOTHYROXINE SODIUM
  6. MAGNESIUM [Concomitant]
     Active Substance: MAGNESIUM
  7. IMIPRAMINE HYDROCHLORIDE. [Concomitant]
     Active Substance: IMIPRAMINE HYDROCHLORIDE
  8. COPAXONE [Suspect]
     Active Substance: GLATIRAMER ACETATE
     Indication: MULTIPLE SCLEROSIS
     Dosage: 20 MILLIGRAM DAILY; SYRINGE
     Route: 058
  9. AMPHETAMINE/DEXTROAMPHETAMINE [Concomitant]
     Active Substance: AMPHETAMINE\DEXTROAMPHETAMINE
  10. KEPPRA [Concomitant]
     Active Substance: LEVETIRACETAM
  11. ESTRACE [Concomitant]
     Active Substance: ESTRADIOL

REACTIONS (1)
  - Respiratory arrest [Fatal]

NARRATIVE: CASE EVENT DATE: 20190319
